FAERS Safety Report 17230756 (Version 2)
Quarter: 2020Q1

REPORT INFORMATION
  Report Type: Spontaneous
  Country: US (occurrence: US)
  Receive Date: 20200103
  Receipt Date: 20200303
  Transmission Date: 20200409
  Serious: No
  Sender: FDA-Public Use
  Company Number: US-LNK INTERNATIONAL, INC.-2078481

PATIENT
  Sex: Female

DRUGS (1)
  1. PSEUDOEPHEDRINE HCL 30MG FC RED TABLETS [Suspect]
     Active Substance: PSEUDOEPHEDRINE HYDROCHLORIDE
     Indication: SINUS CONGESTION

REACTIONS (2)
  - Hypotonia [None]
  - Loss of consciousness [None]
